FAERS Safety Report 6786492-1 (Version None)
Quarter: 2010Q2

REPORT INFORMATION
  Report Type: 
  Country: None (occurrence: None)
  Receive Date: 20100623
  Receipt Date: 20100615
  Transmission Date: 20101027
  Serious: Yes (Life-Threatening)
  Sender: FDA-Public Use
  Company Number: B0660087A

PATIENT
  Sex: Male

DRUGS (6)
  1. ZOVIRAX [Suspect]
     Indication: VARICELLA
     Dosage: 750MG PER DAY
     Route: 042
     Dates: start: 20100607, end: 20100609
  2. MAXIPIME [Suspect]
     Indication: ABSCESS JAW
     Dosage: 4G PER DAY
     Dates: start: 20100606, end: 20100607
  3. PRIMOBOLAN [Concomitant]
     Indication: MYELODYSPLASTIC SYNDROME
     Dosage: 20MG PER DAY
     Route: 048
     Dates: start: 20100101
  4. PYDOXAL [Concomitant]
     Indication: MYELODYSPLASTIC SYNDROME
     Route: 048
     Dates: start: 20100101
  5. TAKEPRON [Concomitant]
     Indication: PROPHYLAXIS
     Dosage: 15MG PER DAY
     Route: 048
     Dates: start: 20100101
  6. MEROPEN [Concomitant]
     Indication: ABSCESS JAW
     Dosage: .5MG PER DAY
     Dates: start: 20100608

REACTIONS (23)
  - ACIDOSIS [None]
  - BLOOD BICARBONATE DECREASED [None]
  - BLOOD CHLORIDE DECREASED [None]
  - BLOOD CREATININE INCREASED [None]
  - BLOOD POTASSIUM DECREASED [None]
  - BLOOD PRESSURE DECREASED [None]
  - BLOOD SODIUM DECREASED [None]
  - BLOOD UREA INCREASED [None]
  - BLOOD URIC ACID INCREASED [None]
  - BLOOD URINE PRESENT [None]
  - C-REACTIVE PROTEIN INCREASED [None]
  - HAEMATOCRIT DECREASED [None]
  - HAEMOGLOBIN DECREASED [None]
  - OLIGURIA [None]
  - PCO2 DECREASED [None]
  - PLATELET COUNT DECREASED [None]
  - PO2 [None]
  - POLYURIA [None]
  - PROTEIN URINE PRESENT [None]
  - RED BLOOD CELL COUNT DECREASED [None]
  - RENAL FAILURE ACUTE [None]
  - TACHYPNOEA [None]
  - WHITE BLOOD CELL COUNT INCREASED [None]
